FAERS Safety Report 11215880 (Version 2)
Quarter: 2015Q2

REPORT INFORMATION
  Report Type: Spontaneous
  Country: GB (occurrence: GB)
  Receive Date: 20150624
  Receipt Date: 20150624
  Transmission Date: 20150821
  Serious: Yes (Life-Threatening, Hospitalization)
  Sender: FDA-Public Use
  Company Number: GB-PFIZER INC-2015209056

PATIENT
  Age: 5 Decade
  Sex: Female
  Weight: 115.6 kg

DRUGS (5)
  1. PREGABALIN. [Suspect]
     Active Substance: PREGABALIN
     Indication: NEURALGIA
     Dosage: 2 DF, 3X/DAY
     Route: 048
  2. DIHYDROCODEINE [Concomitant]
     Active Substance: DIHYDROCODEINE
     Dosage: UNK
  3. FLUCLOXACILLIN [Concomitant]
     Active Substance: FLUCLOXACILLIN
     Dosage: UNK
  4. AMITRIPTYLINE [Concomitant]
     Active Substance: AMITRIPTYLINE
     Dosage: UNK
  5. PENICILLIN V [Concomitant]
     Active Substance: PENICILLIN V
     Dosage: UNK

REACTIONS (9)
  - Disturbance in attention [Recovered/Resolved]
  - Drug hypersensitivity [Recovered/Resolved]
  - Fear [Recovered/Resolved]
  - Cellulitis [Unknown]
  - Hallucination [Recovered/Resolved]
  - Aggression [Recovered/Resolved]
  - Dyspnoea [Recovered/Resolved]
  - Malaise [Recovered/Resolved]
  - Fatigue [Unknown]
